FAERS Safety Report 5765485-7 (Version None)
Quarter: 2008Q2

REPORT INFORMATION
  Report Type: 
  Country: None (occurrence: None)
  Receive Date: 20080611
  Receipt Date: 20080602
  Transmission Date: 20081010
  Serious: Yes (Other)
  Sender: FDA-Public Use
  Company Number: B0522614A

PATIENT
  Sex: Female

DRUGS (1)
  1. CHLORPROMAZINE [Suspect]
     Indication: SCHIZOPHRENIA
     Dosage: 100MG PER DAY
     Route: 065

REACTIONS (3)
  - DRUG LEVEL INCREASED [None]
  - DYSTONIA [None]
  - EXTRAPYRAMIDAL DISORDER [None]
